APPROVED DRUG PRODUCT: ONDANSETRON
Active Ingredient: ONDANSETRON
Strength: 4MG
Dosage Form/Route: TABLET, ORALLY DISINTEGRATING;ORAL
Application: A077557 | Product #001 | TE Code: AB
Applicant: SUN PHARMACEUTICAL INDUSTRIES LTD
Approved: Aug 2, 2007 | RLD: No | RS: No | Type: RX